FAERS Safety Report 9512310 (Version 1)
Quarter: 2013Q1

REPORT INFORMATION
  Report Type: Spontaneous
  Country: US (occurrence: None)
  Receive Date: 20130305
  Receipt Date: 20130305
  Transmission Date: 20140127
  Serious: Yes (Hospitalization, Other)
  Sender: FDA-Public Use
  Company Number: 163-21880-12102280

PATIENT
  Age: 70 Year
  Sex: Male

DRUGS (3)
  1. REVLIMID (LENALIDOMIDE) (CAPSULES) [Suspect]
     Indication: PLASMA CELL MYELOMA
     Dosage: 10 MG, 21 IN 28 D, PO
     Route: 048
     Dates: start: 201203
  2. CLINDAMYCIN (CLINDAMYCIN) (UNKNOWN) [Concomitant]
  3. DOXYCYCLINE (COXYCYCLINE) (UNKNOWN) [Concomitant]

REACTIONS (4)
  - Thrombosis [None]
  - Fungal infection [None]
  - Bronchitis [None]
  - Hypoacusis [None]
